FAERS Safety Report 4594951-5 (Version None)
Quarter: 2005Q1

REPORT INFORMATION
  Report Type: 
  Country: None (occurrence: None)
  Receive Date: 20050223
  Receipt Date: 20050210
  Transmission Date: 20050727
  Serious: Yes (Other)
  Sender: FDA-Public Use
  Company Number: 2005027213

PATIENT
  Age: 56 Year
  Sex: Female

DRUGS (1)
  1. CELEBRA (CELECOXIB) [Suspect]
     Indication: ARTHRALGIA
     Dosage: ORAL
     Route: 048
     Dates: start: 20010101

REACTIONS (2)
  - CEREBRAL ISCHAEMIA [None]
  - DIZZINESS [None]
